FAERS Safety Report 10138084 (Version 1)
Quarter: 2014Q2

REPORT INFORMATION
  Report Type: Spontaneous
  Country: US (occurrence: US)
  Receive Date: 20140429
  Receipt Date: 20140429
  Transmission Date: 20141212
  Serious: Yes (Other)
  Sender: FDA-Public Use
  Company Number: US-BAYER-2014-061141

PATIENT
  Age: 17 Year
  Sex: Female

DRUGS (2)
  1. YASMIN [Suspect]
  2. ALBUTEROL SULFATE [Concomitant]

REACTIONS (1)
  - Pulmonary embolism [None]
